FAERS Safety Report 10419230 (Version 1)
Quarter: 2014Q2

REPORT INFORMATION
  Report Type: Spontaneous
  Country: US (occurrence: None)
  Receive Date: 20140617
  Receipt Date: 20140617
  Transmission Date: 20141212
  Serious: Yes (Other)
  Sender: FDA-Public Use
  Company Number: 1218672

PATIENT
  Sex: Female

DRUGS (3)
  1. ACTERMA 5% TWO INFUSION DOSES [Suspect]
     Indication: PRODUCT USED FOR UNKNOWN INDICATION
  2. CIMZIA (CERTOLIZUMAB PEGOL) [Concomitant]
  3. REMICADE (INFLIXIMAB) [Concomitant]

REACTIONS (1)
  - Urticaria [None]
